FAERS Safety Report 13942359 (Version 2)
Quarter: 2018Q4

REPORT INFORMATION
  Report Type: Other
  Country: US (occurrence: US)
  Receive Date: 20170907
  Receipt Date: 20181116
  Transmission Date: 20190204
  Serious: Yes (Death, Other)
  Sender: FDA-Public Use
  Company Number: US-ASTELLAS-2017US035530

PATIENT
  Age: 63 Year
  Sex: Male

DRUGS (3)
  1. MYCOPHENOLATE MOFETIL. [Suspect]
     Active Substance: MYCOPHENOLATE MOFETIL
     Indication: RENAL TRANSPLANT
     Route: 065
  2. TACROLIMUS. [Suspect]
     Active Substance: TACROLIMUS
     Indication: RENAL TRANSPLANT
     Dosage: UNK UNK, UNKNOWN FREQ. (TROUGH RANGE 5 TO 8 NG/ML)
     Route: 065
  3. ANTITHYMOCYTE IMMUNOGLOBULIN [Suspect]
     Active Substance: THYMOCYTE IMMUNE GLOBULIN NOS
     Indication: RENAL TRANSPLANT
     Route: 065

REACTIONS (10)
  - Angiosarcoma [Fatal]
  - Lymphadenopathy [Unknown]
  - Angiosarcoma metastatic [Unknown]
  - Sepsis [Fatal]
  - Respiratory failure [Unknown]
  - Peripheral venous disease [Unknown]
  - Leg amputation [Unknown]
  - Deep vein thrombosis [Recovering/Resolving]
  - Wound complication [Fatal]
  - Metastases to lung [Unknown]
